FAERS Safety Report 9910677 (Version 1)
Quarter: 2014Q1

REPORT INFORMATION
  Report Type: Spontaneous
  Country: US (occurrence: US)
  Receive Date: 20140219
  Receipt Date: 20140219
  Transmission Date: 20141002
  Serious: No
  Sender: FDA-Public Use
  Company Number: US-GILEAD-2012-0053784

PATIENT
  Age: 37 Year
  Sex: Male

DRUGS (1)
  1. LETAIRIS [Suspect]
     Indication: PRODUCT USED FOR UNKNOWN INDICATION
     Dosage: 10 MG, UNK
     Route: 048
     Dates: start: 20100303

REACTIONS (5)
  - Unevaluable event [Unknown]
  - Diarrhoea [Unknown]
  - Pain in jaw [Unknown]
  - Unevaluable event [Unknown]
  - Erythema [Unknown]
